FAERS Safety Report 5335339-9 (Version None)
Quarter: 2007Q2

REPORT INFORMATION
  Report Type: 
  Country: None (occurrence: None)
  Receive Date: 20070525
  Receipt Date: 20070516
  Transmission Date: 20071010
  Serious: Yes (Other)
  Sender: FDA-Public Use
  Company Number: US-PFIZER INC-2007039291

PATIENT
  Sex: Female
  Weight: 60.8 kg

DRUGS (2)
  1. ZOLOFT [Suspect]
  2. ZYPREXA [Concomitant]

REACTIONS (4)
  - BLINDNESS [None]
  - CATARACT [None]
  - GLAUCOMA [None]
  - MACULAR DEGENERATION [None]
